FAERS Safety Report 25278741 (Version 1)
Quarter: 2025Q2

REPORT INFORMATION
  Report Type: Report from Study
  Country: CA (occurrence: CA)
  Receive Date: 20250507
  Receipt Date: 20250507
  Transmission Date: 20250716
  Serious: Yes (Other)
  Sender: NOVARTIS
  Company Number: CA-002147023-NVSC2025CA072096

PATIENT
  Age: 76 Year

DRUGS (1)
  1. LEQVIO [Suspect]
     Active Substance: INCLISIRAN SODIUM
     Indication: Arteriosclerosis
     Route: 058
     Dates: start: 20221224

REACTIONS (4)
  - Blood creatinine increased [Unknown]
  - High density lipoprotein increased [Unknown]
  - Blood urea increased [Unknown]
  - Total cholesterol/HDL ratio decreased [Unknown]

NARRATIVE: CASE EVENT DATE: 20250423
